FAERS Safety Report 16346195 (Version 1)
Quarter: 2019Q2

REPORT INFORMATION
  Report Type: Spontaneous
  Country: NL (occurrence: NL)
  Receive Date: 20190523
  Receipt Date: 20190523
  Transmission Date: 20190711
  Serious: Yes (Other)
  Sender: FDA-Public Use
  Company Number: NL-AUROBINDO-AUR-APL-2019-026809

PATIENT

DRUGS (1)
  1. OXYCODONE [Suspect]
     Active Substance: OXYCODONE
     Indication: SURGERY
     Dosage: 1 DOSAGE FORM, TWO TIMES A DAY (2XPER DAG)
     Route: 048
     Dates: start: 20180803, end: 20180808

REACTIONS (1)
  - Apnoea [Recovered/Resolved]
